FAERS Safety Report 10637304 (Version 3)
Quarter: 2017Q1

REPORT INFORMATION
  Report Type: Spontaneous
  Country: IL (occurrence: UY)
  Receive Date: 20141208
  Receipt Date: 20170109
  Transmission Date: 20170428
  Serious: Yes (Death, Other)
  Sender: FDA-Public Use
  Company Number: IL-SHIRE-UY201408640

PATIENT
  Age: 62 Year
  Sex: Male
  Weight: 87 kg

DRUGS (1)
  1. VPRIV [Suspect]
     Active Substance: VELAGLUCERASE ALFA
     Indication: GAUCHER^S DISEASE
     Dosage: 60 MG/KG, 1X/2WKS (EVERY 14 DAYS)
     Route: 041
     Dates: end: 20150715

REACTIONS (3)
  - Obstruction [Fatal]
  - Adenocarcinoma of colon [Unknown]
  - Metastasis [Unknown]

NARRATIVE: CASE EVENT DATE: 2014
